FAERS Safety Report 11540643 (Version 1)
Quarter: 2015Q3

REPORT INFORMATION
  Report Type: Spontaneous
  Country: US (occurrence: US)
  Receive Date: 20150923
  Receipt Date: 20150923
  Transmission Date: 20151125
  Serious: No
  Sender: FDA-Public Use
  Company Number: US-BEH-2015051592

PATIENT
  Sex: Female
  Weight: 74 kg

DRUGS (17)
  1. HEPARIN [Concomitant]
     Active Substance: HEPARIN SODIUM
  2. AZITHROMYCIN [Concomitant]
     Active Substance: AZITHROMYCIN ANHYDROUS
  3. PULMICORT TURBUHALER [Concomitant]
     Active Substance: BUDESONIDE
  4. ACETAMINOPHEN. [Concomitant]
     Active Substance: ACETAMINOPHEN
  5. ADVAIR DISKUS [Concomitant]
     Active Substance: FLUTICASONE PROPIONATE\SALMETEROL XINAFOATE
  6. DIPHENHYDRAMINE. [Concomitant]
     Active Substance: DIPHENHYDRAMINE
  7. ALBUTEROL. [Concomitant]
     Active Substance: ALBUTEROL
  8. PRIVIGEN [Suspect]
     Active Substance: HUMAN IMMUNOGLOBULIN G
     Indication: HYPOGAMMAGLOBULINAEMIA
     Route: 042
  9. DILTIAZEM [Concomitant]
     Active Substance: DILTIAZEM
  10. PROAIR HFA [Concomitant]
     Active Substance: ALBUTEROL SULFATE
  11. EPIPEN [Concomitant]
     Active Substance: EPINEPHRINE
  12. PRIVIGEN [Suspect]
     Active Substance: HUMAN IMMUNOGLOBULIN G
     Indication: RESPIRATORY DISORDER
     Route: 042
  13. TRAZODONE HYDROCHLORIDE. [Concomitant]
     Active Substance: TRAZODONE HYDROCHLORIDE
  14. NORMAL SALINE [Concomitant]
     Active Substance: SODIUM CHLORIDE
  15. PRIVIGEN [Suspect]
     Active Substance: HUMAN IMMUNOGLOBULIN G
     Indication: HYPOGAMMAGLOBULINAEMIA
     Route: 042
  16. ALPRAZOLAM. [Concomitant]
     Active Substance: ALPRAZOLAM
  17. LORYNA [Concomitant]
     Active Substance: DROSPIRENONE\ETHINYL ESTRADIOL

REACTIONS (2)
  - Vomiting [Recovered/Resolved]
  - Nausea [Recovered/Resolved]
